FAERS Safety Report 17846446 (Version 1)
Quarter: 2020Q2

REPORT INFORMATION
  Report Type: Spontaneous
  Country: US (occurrence: US)
  Receive Date: 20200531
  Receipt Date: 20200531
  Transmission Date: 20200714
  Serious: Yes (Other)
  Sender: FDA-Public Use
  Company Number: None

PATIENT
  Age: 42 Year

DRUGS (2)
  1. COCONUT JOE^S SPF 30 BODY BUTTER [Suspect]
     Active Substance: ZINC OXIDE
     Dates: start: 20200524, end: 20200531
  2. COCONUT JOE^S SUNSCREEN LOTION [Suspect]
     Active Substance: ZINC OXIDE
     Dates: start: 20200524, end: 20200531

REACTIONS (4)
  - Burns second degree [None]
  - Sunburn [None]
  - Fluid retention [None]
  - Erythema [None]

NARRATIVE: CASE EVENT DATE: 20200523
